FAERS Safety Report 4572426-7 (Version None)
Quarter: 2005Q1

REPORT INFORMATION
  Report Type: 
  Country: None (occurrence: None)
  Receive Date: 20050207
  Receipt Date: 20050128
  Transmission Date: 20050727
  Serious: Yes (Other)
  Sender: FDA-Public Use
  Company Number: JP-GLAXOSMITHKLINE-B0369301A

PATIENT
  Age: 32 Year
  Sex: Female

DRUGS (5)
  1. ALKERAN [Suspect]
     Indication: STEM CELL TRANSPLANT
     Dosage: 70MGM2 PER DAY
     Route: 042
  2. FK [Suspect]
     Indication: PROPHYLAXIS AGAINST TRANSPLANT REJECTION
     Route: 065
  3. METHYLPREDNISOLONE [Suspect]
     Indication: PROPHYLAXIS AGAINST TRANSPLANT REJECTION
     Route: 065
  4. FLUDARABINE PHOSPHATE [Concomitant]
     Indication: STEM CELL TRANSPLANT
     Dosage: 30MGM2 PER DAY
     Route: 042
  5. ANTI-HUMAN THYMOCYTE IMMUNOGLOBULIN,EQUINE [Concomitant]
     Indication: STEM CELL TRANSPLANT
     Dosage: 2MGK PER DAY
     Route: 042

REACTIONS (2)
  - CYTOMEGALOVIRUS ENTEROCOLITIS [None]
  - HERPES ZOSTER [None]
